FAERS Safety Report 18978584 (Version 1)
Quarter: 2021Q1

REPORT INFORMATION
  Report Type: Report from Study
  Country: US (occurrence: US)
  Receive Date: 20210308
  Receipt Date: 20210308
  Transmission Date: 20210420
  Serious: Yes (Hospitalization, Other)
  Sender: FDA-Public Use
  Company Number: US-TAKEDA-US201936533

PATIENT
  Age: 10 Year
  Sex: Male

DRUGS (4)
  1. TEDUGLUTIDE [Suspect]
     Active Substance: TEDUGLUTIDE
     Indication: SHORT-BOWEL SYNDROME
     Dosage: 0.13 MILLIGRAM, 1X/DAY:QD
     Route: 058
     Dates: start: 20190930
  2. TEDUGLUTIDE [Suspect]
     Active Substance: TEDUGLUTIDE
     Indication: SHORT-BOWEL SYNDROME
     Dosage: 0.13 MILLIGRAM, 1X/DAY:QD
     Route: 058
     Dates: start: 20190930
  3. TEDUGLUTIDE [Suspect]
     Active Substance: TEDUGLUTIDE
     Indication: SHORT-BOWEL SYNDROME
     Dosage: 0.13 MILLIGRAM, 1X/DAY:QD
     Route: 058
     Dates: start: 20190930
  4. TEDUGLUTIDE [Suspect]
     Active Substance: TEDUGLUTIDE
     Indication: SHORT-BOWEL SYNDROME
     Dosage: 0.13 MILLIGRAM, 1X/DAY:QD
     Route: 058
     Dates: start: 20190930

REACTIONS (3)
  - Parenteral nutrition [Unknown]
  - Vascular device infection [Unknown]
  - Drug ineffective [Unknown]

NARRATIVE: CASE EVENT DATE: 20191018
